FAERS Safety Report 4910932-3 (Version None)
Quarter: 2006Q1

REPORT INFORMATION
  Report Type: 
  Country: None (occurrence: None)
  Receive Date: 20060214
  Receipt Date: 20060203
  Transmission Date: 20060701
  Serious: Yes (Death)
  Sender: FDA-Public Use
  Company Number: CH-ROCHE-435092

PATIENT
  Age: 56 Year
  Sex: Female

DRUGS (14)
  1. TOREM [Suspect]
     Indication: DRUG USE FOR UNKNOWN INDICATION
     Route: 048
  2. GLUCOPHAGE [Suspect]
     Dosage: FORM: COATED TABLETS, FILM. DURATION OF USE: YEARS.
     Route: 048
  3. SELIPRAN [Suspect]
     Indication: HYPERLIPIDAEMIA
     Route: 048
  4. SALAZOPYRIN [Suspect]
     Indication: CROHN'S DISEASE
     Route: 048
  5. NEXIUM [Suspect]
     Indication: GASTRITIS
     Route: 048
  6. PURINETHOL [Suspect]
     Indication: AUTOIMMUNE THYROIDITIS
     Dosage: DURATION OF USE: YEARS.
     Route: 048
  7. VITARUBIN [Concomitant]
     Indication: ANAEMIA VITAMIN B12 DEFICIENCY
     Route: 058
  8. BENERVA [Concomitant]
     Route: 048
  9. KONAKION [Concomitant]
     Dosage: FORM: COATED TABLETS, FILM.
     Route: 048
  10. NOROXIN [Concomitant]
     Route: 048
     Dates: start: 20051021, end: 20051023
  11. BACTRIM [Concomitant]
     Indication: BRONCHIECTASIS
     Dosage: FORM: COATED TABLETS, FILM. STRENGTH: 800 MG/ 160 MG DOSING FREQUENCY: 1 CYCLIC (DURATION: THREE WE+
     Route: 048
  12. BELOC [Concomitant]
     Indication: ESSENTIAL HYPERTENSION
     Dosage: FORM: TABLETS, OTHER.
  13. ZYRTEC [Concomitant]
     Dosage: FORM: COATED TABLETS, FILM.
     Route: 048
  14. SPIRIVA [Concomitant]
     Indication: CHRONIC OBSTRUCTIVE PULMONARY DISEASE
     Dosage: FORM: CAPSULES, INHALER.
     Route: 039

REACTIONS (15)
  - ACUTE ABDOMEN [None]
  - ALANINE AMINOTRANSFERASE INCREASED [None]
  - ASPARTATE AMINOTRANSFERASE INCREASED [None]
  - DEATH [None]
  - DIALYSIS [None]
  - FAECAL VOMITING [None]
  - HAEMODYNAMIC INSTABILITY [None]
  - HEPATIC TRAUMA [None]
  - HEPATITIS [None]
  - LACTIC ACIDOSIS [None]
  - METABOLIC ACIDOSIS [None]
  - NAUSEA [None]
  - PANCREATITIS ACUTE [None]
  - RENAL FAILURE ACUTE [None]
  - RESPIRATORY FAILURE [None]
